FAERS Safety Report 13692234 (Version 1)
Quarter: 2017Q2

REPORT INFORMATION
  Report Type: Spontaneous
  Country: ZA (occurrence: ZA)
  Receive Date: 20170627
  Receipt Date: 20170627
  Transmission Date: 20170830
  Serious: Yes (Hospitalization)
  Sender: FDA-Public Use
  Company Number: US-ASTRAZENECA-2017SE65698

PATIENT
  Sex: Male
  Weight: .9 kg

DRUGS (1)
  1. SYNAGIS [Suspect]
     Active Substance: PALIVIZUMAB
     Indication: PRODUCT USED FOR UNKNOWN INDICATION
     Dosage: 2 DOSES OF SYNAGIS(APR, MAY)
     Route: 030

REACTIONS (4)
  - Abdominal hernia [Unknown]
  - Nosocomial infection [Unknown]
  - Appendicectomy [Unknown]
  - Respiratory syncytial virus infection [Unknown]
